FAERS Safety Report 8452021-X (Version None)
Quarter: 2012Q2

REPORT INFORMATION
  Report Type: 
  Country: None (occurrence: None)
  Receive Date: 20120620
  Receipt Date: 20120416
  Transmission Date: 20120825
  Serious: No
  Sender: FDA-Public Use
  Company Number: US-VERTEX PHARMACEUTICALS INC.-AE-2012-004534

PATIENT
  Sex: Female
  Weight: 107.6 kg

DRUGS (13)
  1. RIBAVIRIN [Concomitant]
     Indication: HEPATITIS C
     Route: 048
     Dates: start: 20120317
  2. IBUPROFEN [Concomitant]
     Indication: DISCOMFORT
     Route: 048
  3. AMBIEN [Concomitant]
     Route: 048
  4. ASCORBIC ACID [Concomitant]
     Route: 048
  5. PEGASYS [Concomitant]
     Indication: HEPATITIS C
     Route: 058
     Dates: start: 20120317
  6. LEVOTHYROXINE SODIUM [Concomitant]
     Indication: THYROID HORMONE REPLACEMENT THERAPY
     Route: 048
  7. INCIVEK [Suspect]
     Indication: HEPATITIS C
     Route: 048
     Dates: start: 20120317
  8. VITAMIN E [Concomitant]
     Route: 048
  9. VITAMIN D [Concomitant]
     Route: 048
  10. L-CARNATINE [Concomitant]
     Route: 048
  11. CALCIUM WITH ZINC AND MAGNESIUM [Concomitant]
     Route: 048
  12. GLYBURIDE [Concomitant]
     Indication: DIABETES MELLITUS
     Route: 048
  13. ACIDOPHILUS [Concomitant]
     Route: 048

REACTIONS (3)
  - HEADACHE [None]
  - DRUG DOSE OMISSION [None]
  - FATIGUE [None]
